FAERS Safety Report 4988424-5 (Version None)
Quarter: 2006Q2

REPORT INFORMATION
  Report Type: 
  Country: None (occurrence: None)
  Receive Date: 20060502
  Receipt Date: 20060421
  Transmission Date: 20061013
  Serious: Yes (Hospitalization)
  Sender: FDA-Public Use
  Company Number: FR-BRISTOL-MYERS SQUIBB COMPANY-13359500

PATIENT
  Age: 64 Year
  Sex: Male

DRUGS (5)
  1. ERBITUX [Suspect]
     Indication: COLORECTAL CANCER
     Dosage: INITIATED AT 400 MG/M2 ON 06-FEB-2006.  THERAPY INTERRUPTED.
     Route: 042
     Dates: start: 20060413, end: 20060413
  2. ELOXATIN [Suspect]
     Indication: COLORECTAL CANCER
     Dosage: INITIATED ON 07-FEB-2006.  THERAPY INTERRUPTED.
     Route: 042
     Dates: start: 20060414, end: 20060414
  3. GEMZAR [Suspect]
     Indication: PANCREATIC CARCINOMA
     Dosage: INITIATED ON 06-FEB-2006.
     Route: 042
     Dates: start: 20060413, end: 20060413
  4. DOXYCYCLINE [Concomitant]
     Indication: ACNE
     Dates: start: 20060228
  5. AMIODARONE HCL [Concomitant]
     Indication: CARDIAC DISORDER

REACTIONS (4)
  - GENERALISED OEDEMA [None]
  - HEPATIC ENCEPHALOPATHY [None]
  - KETOACIDOSIS [None]
  - PANCYTOPENIA [None]
